FAERS Safety Report 20657707 (Version 2)
Quarter: 2022Q2

REPORT INFORMATION
  Report Type: Report from Study
  Country: US (occurrence: US)
  Receive Date: 20220331
  Receipt Date: 20220519
  Transmission Date: 20220721
  Serious: No
  Sender: FDA-Public Use
  Company Number: US-BRISTOL-MYERS SQUIBB COMPANY-2022-011833

PATIENT
  Age: 59 Year
  Sex: Female
  Weight: 87.99 kg

DRUGS (1)
  1. REVLIMID [Suspect]
     Active Substance: LENALIDOMIDE
     Indication: Plasma cell myeloma
     Dosage: DAYS 1-21, 7 DAYS OFF
     Route: 048
     Dates: start: 20171026

REACTIONS (3)
  - Fatigue [Unknown]
  - Decreased appetite [Unknown]
  - Malaise [Unknown]
